FAERS Safety Report 22358278 (Version 3)
Quarter: 2024Q3

REPORT INFORMATION
  Report Type: Spontaneous
  Country: JP (occurrence: JP)
  Receive Date: 20230524
  Receipt Date: 20240829
  Transmission Date: 20241016
  Serious: Yes (Other)
  Sender: AMGEN
  Company Number: JP-AMGEN-JPNSP2022118589

PATIENT
  Sex: Male

DRUGS (4)
  1. LUMAKRAS [Suspect]
     Active Substance: SOTORASIB
     Indication: Non-small cell lung cancer recurrent
     Dosage: 960 MILLIGRAM, QD
     Route: 048
     Dates: start: 20220420
  2. LUMAKRAS [Suspect]
     Active Substance: SOTORASIB
     Dosage: 120 MILLIGRAM, ONCE EVERY THREE DAYS
     Route: 048
     Dates: start: 202209
  3. LUMAKRAS [Suspect]
     Active Substance: SOTORASIB
     Dosage: 120 MILLIGRAM, QD
     Route: 048
  4. LUMAKRAS [Suspect]
     Active Substance: SOTORASIB
     Dosage: 960 MILLIGRAM, QD
     Route: 048
     Dates: end: 202405

REACTIONS (2)
  - Hepatic function abnormal [Recovered/Resolved]
  - Non-small cell lung cancer [Unknown]

NARRATIVE: CASE EVENT DATE: 20220520
